FAERS Safety Report 10306064 (Version 2)
Quarter: 2014Q3

REPORT INFORMATION
  Report Type: Spontaneous
  Country: JP (occurrence: JP)
  Receive Date: 20140715
  Receipt Date: 20140723
  Transmission Date: 20150326
  Serious: Yes (Other)
  Sender: FDA-Public Use
  Company Number: JP-GLAXOSMITHKLINE-B1013133A

PATIENT
  Age: 42 Year
  Sex: Female

DRUGS (2)
  1. RELVAR ELLIPTA [Suspect]
     Active Substance: FLUTICASONE FUROATE\VILANTEROL TRIFENATATE
     Indication: ASTHMA
     Dosage: 100MCG PER DAY
     Route: 055
     Dates: start: 20140303
  2. EPINASTINE [Concomitant]
     Active Substance: EPINASTINE
     Indication: URTICARIA
     Dosage: 20MG PER DAY
     Route: 048
     Dates: start: 20140303

REACTIONS (2)
  - Oesophageal candidiasis [Recovering/Resolving]
  - Oral candidiasis [Recovering/Resolving]
